FAERS Safety Report 13648485 (Version 1)
Quarter: 2017Q2

REPORT INFORMATION
  Report Type: Spontaneous
  Country: US (occurrence: US)
  Receive Date: 20170613
  Receipt Date: 20170613
  Transmission Date: 20170830
  Serious: Yes (Hospitalization)
  Sender: FDA-Public Use
  Company Number: US-PFIZER INC-2017254428

PATIENT
  Age: 86 Year
  Sex: Female
  Weight: 70 kg

DRUGS (7)
  1. PLAVIX [Concomitant]
     Active Substance: CLOPIDOGREL BISULFATE
     Indication: BLOOD DISORDER
     Dosage: 75 MG, UNK
  2. LATANOPROST. [Suspect]
     Active Substance: LATANOPROST
     Indication: MACULAR DEGENERATION
  3. PLAVIX [Concomitant]
     Active Substance: CLOPIDOGREL BISULFATE
     Dosage: 75MG 1/2 TABLET ONCE A DAY
  4. DILTIZEM [Concomitant]
     Indication: BLOOD PRESSURE ABNORMAL
     Dosage: 120 MG, 1X/DAY
  5. AMBIEN [Concomitant]
     Active Substance: ZOLPIDEM TARTRATE
     Indication: SLEEP DISORDER
     Dosage: 5MG AT NIGHT AS NEEDED
  6. LATANOPROST. [Suspect]
     Active Substance: LATANOPROST
     Indication: GLAUCOMA
     Dosage: 1 DROP IN EACH EYE AT NIGHT
     Dates: start: 2016
  7. SYNTHROID [Concomitant]
     Active Substance: LEVOTHYROXINE SODIUM
     Indication: THYROIDECTOMY
     Dosage: 88MCG ONCE A DAY IN THE MORNING

REACTIONS (5)
  - Synovial cyst [Unknown]
  - Peripheral swelling [Unknown]
  - Thrombosis [Recovered/Resolved]
  - Arthritis [Unknown]
  - Erythema [Unknown]

NARRATIVE: CASE EVENT DATE: 2016
